FAERS Safety Report 14896699 (Version 1)
Quarter: 2018Q2

REPORT INFORMATION
  Report Type: Spontaneous
  Country: IT (occurrence: IT)
  Receive Date: 20180515
  Receipt Date: 20180515
  Transmission Date: 20180711
  Serious: Yes (Hospitalization)
  Sender: FDA-Public Use
  Company Number: IT-009507513-1805ITA003212

PATIENT
  Age: 77 Year
  Sex: Male

DRUGS (7)
  1. EFFEXOR XR [Concomitant]
     Active Substance: VENLAFAXINE HYDROCHLORIDE
  2. CARDIRENE [Concomitant]
     Active Substance: ASPIRIN DL-LYSINE
  3. VALPRESSION [Concomitant]
     Active Substance: VALSARTAN
  4. LANSOX [Concomitant]
     Active Substance: LANSOPRAZOLE
  5. KEYTRUDA [Suspect]
     Active Substance: PEMBROLIZUMAB
     Indication: LUNG ADENOCARCINOMA
     Dosage: CYCLICAL
     Route: 041
     Dates: start: 20180101, end: 20180330
  6. LASIX [Concomitant]
     Active Substance: FUROSEMIDE
  7. INEGY 10 MG/10 MG COMPRESSE [Concomitant]
     Active Substance: EZETIMIBE\SIMVASTATIN

REACTIONS (1)
  - Muscular weakness [Not Recovered/Not Resolved]

NARRATIVE: CASE EVENT DATE: 20180411
